FAERS Safety Report 21803675 (Version 1)
Quarter: 2023Q1

REPORT INFORMATION
  Report Type: Spontaneous
  Country: PK (occurrence: PK)
  Receive Date: 20230102
  Receipt Date: 20230102
  Transmission Date: 20230418
  Serious: Yes (Life-Threatening, Hospitalization)
  Sender: FDA-Public Use
  Company Number: PK-STRIDES ARCOLAB LIMITED-2022SP017664

PATIENT
  Age: 21 Year
  Sex: Male

DRUGS (3)
  1. DEXAMETHASONE [Suspect]
     Active Substance: DEXAMETHASONE
     Indication: Haemophagocytic lymphohistiocytosis
     Dosage: UNK, HAEMOPHAGOCYTIC LYMPHOHISTIOCYTOSIS (HLH)-94 PROTOCOL
     Route: 065
  2. ETOPOSIDE [Suspect]
     Active Substance: ETOPOSIDE
     Indication: Haemophagocytic lymphohistiocytosis
     Dosage: UNK, HAEMOPHAGOCYTIC LYMPHOHISTIOCYTOSIS (HLH)-94 PROTOCOL
     Route: 065
  3. METHOTREXATE [Suspect]
     Active Substance: METHOTREXATE
     Indication: Haemophagocytic lymphohistiocytosis
     Dosage: UNK, HAEMOPHAGOCYTIC LYMPHOHISTIOCYTOSIS (HLH)-94 PROTOCOL
     Route: 037

REACTIONS (4)
  - Haematemesis [Unknown]
  - Mucormycosis [Recovered/Resolved]
  - Gastric infection [Recovered/Resolved]
  - Off label use [Unknown]
